FAERS Safety Report 8471331-3 (Version None)
Quarter: 2012Q2

REPORT INFORMATION
  Report Type: 
  Country: None (occurrence: None)
  Receive Date: 20120627
  Receipt Date: 20120621
  Transmission Date: 20120825
  Serious: Yes (Hospitalization, Other)
  Sender: FDA-Public Use
  Company Number: US-NOVOPROD-352521

PATIENT
  Age: 75 Year
  Sex: Female

DRUGS (3)
  1. NOVOLOG [Suspect]
     Dosage: UNKNOWN
  2. NOVOLOG [Suspect]
     Dosage: UNKNOWN
     Route: 058
  3. NOVOLOG [Suspect]
     Indication: TYPE 1 DIABETES MELLITUS
     Dosage: UNKNOWN
     Route: 058

REACTIONS (2)
  - CEREBROVASCULAR ACCIDENT [None]
  - BLOOD GLUCOSE INCREASED [None]
